FAERS Safety Report 8318656-X (Version None)
Quarter: 2012Q2

REPORT INFORMATION
  Report Type: 
  Country: None (occurrence: None)
  Receive Date: 20120427
  Receipt Date: 20120418
  Transmission Date: 20120825
  Serious: Yes (Hospitalization)
  Sender: FDA-Public Use
  Company Number: ES-ELI_LILLY_AND_COMPANY-ES201204006997

PATIENT
  Sex: Male
  Weight: 77 kg

DRUGS (8)
  1. OXYGEN [Concomitant]
     Indication: CHRONIC OBSTRUCTIVE PULMONARY DISEASE
     Dosage: 18 H, QD
     Route: 055
  2. OMEPRAZOLE [Concomitant]
     Indication: GASTRIC DISORDER
     Dosage: 1 DF, QD
     Route: 048
  3. ACETAMINOPHEN [Concomitant]
     Indication: PAIN
     Dosage: 1 DF, TID
     Route: 048
  4. BROMURO DE IPRATROPIO [Concomitant]
     Indication: CHRONIC OBSTRUCTIVE PULMONARY DISEASE
     Dosage: 20 CGR, QOD
     Route: 055
  5. FORTEO [Suspect]
     Indication: OSTEOPOROSIS
     Dosage: 20 UG, QD
     Route: 058
     Dates: start: 20120206
  6. OXYCONTIN [Concomitant]
     Indication: PAIN
     Dosage: 1 DF, BID
     Route: 048
  7. INDACATEROL [Concomitant]
     Indication: CHRONIC OBSTRUCTIVE PULMONARY DISEASE
     Dosage: 1 DF, QOD
     Route: 055
  8. LYRICA [Concomitant]
     Indication: NEURALGIA
     Dosage: 150 MG, BID
     Route: 048

REACTIONS (1)
  - ANEURYSM [None]
